FAERS Safety Report 4567843-5 (Version None)
Quarter: 2005Q1

REPORT INFORMATION
  Report Type: 
  Country: None (occurrence: None)
  Receive Date: 20050202
  Receipt Date: 20041029
  Transmission Date: 20050727
  Serious: No
  Sender: FDA-Public Use
  Company Number: US-GLAXOSMITHKLINE-A0531816A

PATIENT
  Age: 67 Year
  Sex: Female

DRUGS (8)
  1. AVANDAMET [Suspect]
     Dosage: .5TAB PER DAY
     Route: 048
  2. GLUCOTROL [Concomitant]
  3. ASPIRIN [Concomitant]
  4. MAGNESIUM [Concomitant]
  5. VITAMIN E [Concomitant]
  6. SYNTHROID [Concomitant]
  7. DIOVAN [Concomitant]
  8. MULTIPLE VITAMIN [Concomitant]

REACTIONS (5)
  - FATIGUE [None]
  - HYPOAESTHESIA [None]
  - JOINT SWELLING [None]
  - LOCAL SWELLING [None]
  - PAIN [None]
